FAERS Safety Report 17361513 (Version 2)
Quarter: 2020Q2

REPORT INFORMATION
  Report Type: Spontaneous
  Country: US (occurrence: US)
  Receive Date: 20200203
  Receipt Date: 20200401
  Transmission Date: 20200713
  Serious: No
  Sender: FDA-Public Use
  Company Number: US-PFIZER INC-2019224352

PATIENT
  Age: 84 Year
  Sex: Female

DRUGS (1)
  1. LYRICA [Suspect]
     Active Substance: PREGABALIN
     Indication: RHEUMATOID ARTHRITIS
     Dosage: 100 MG, 1X/DAY (EVERY BEDTIME)
     Route: 048

REACTIONS (3)
  - Off label use [Unknown]
  - Arthritis [Recovered/Resolved]
  - Product use in unapproved indication [Unknown]
